FAERS Safety Report 6550097-8 (Version None)
Quarter: 2010Q1

REPORT INFORMATION
  Report Type: 
  Country: None (occurrence: None)
  Receive Date: 20100125
  Receipt Date: 20100120
  Transmission Date: 20100710
  Serious: Yes (Hospitalization, Other)
  Sender: FDA-Public Use
  Company Number: HR-PFIZER INC-2006132922

PATIENT
  Age: 56 Year
  Sex: Male
  Weight: 90 kg

DRUGS (8)
  1. VIAGRA [Suspect]
     Indication: ERECTILE DYSFUNCTION
     Dosage: OD: NA
     Route: 048
     Dates: start: 20061028, end: 20061028
  2. SELEGILINE HCL [Concomitant]
     Indication: PARKINSON'S DISEASE
     Dosage: 5 MG, 2X/DAY
     Route: 048
     Dates: start: 20020101, end: 20061029
  3. CARBIDOPA AND LEVODOPA [Suspect]
     Indication: PARKINSON'S DISEASE
     Dosage: 25 MG, 4X/DAY
     Route: 048
     Dates: start: 20020101, end: 20061029
  4. CARBIDOPA AND LEVODOPA [Suspect]
     Dosage: 100 MG, 4X/DAY
  5. IBUPROFEN [Concomitant]
     Route: 048
     Dates: start: 20061028, end: 20061028
  6. XANAX [Concomitant]
     Route: 048
  7. ZOLOFT [Concomitant]
     Route: 048
  8. ZOLPIDEM [Concomitant]
     Route: 048

REACTIONS (13)
  - ACUTE STRESS DISORDER [None]
  - ANXIETY [None]
  - CHOREA [None]
  - DEPRESSION [None]
  - ERECTION INCREASED [None]
  - GAIT DISTURBANCE [None]
  - INSOMNIA [None]
  - MOTOR DYSFUNCTION [None]
  - PANIC REACTION [None]
  - PARAESTHESIA [None]
  - RESTLESSNESS [None]
  - SOMNOLENCE [None]
  - TREMOR [None]
